FAERS Safety Report 16971938 (Version 1)
Quarter: 2019Q4

REPORT INFORMATION
  Report Type: Report from Study
  Country: US (occurrence: US)
  Receive Date: 20191029
  Receipt Date: 20191029
  Transmission Date: 20200122
  Serious: Yes (Death)
  Sender: FDA-Public Use
  Company Number: US-TEVA-2019-US-1128825

PATIENT

DRUGS (2)
  1. PROPYLENE GLYCOL-CONTAINING MELPHALAN [Suspect]
     Active Substance: MELPHALAN
     Dosage: DOSE: HIGH-DOSE MELPHALAN 100 MG/M2/DOSE FOR TWO CONSECUTIVE DOSES
     Route: 042
  2. ONDANSETRON [Concomitant]
     Active Substance: ONDANSETRON
     Dosage: ADMINISTERED ALONGSIDE HIGH-DOSE MELPHALAN AS PER PROTOCOL
     Route: 065

REACTIONS (2)
  - Septic shock [Fatal]
  - Multiple organ dysfunction syndrome [Fatal]
